FAERS Safety Report 8824933 (Version 1)
Quarter: 2012Q4

REPORT INFORMATION
  Report Type: 
  Country: FR (occurrence: FR)
  Receive Date: 20121004
  Receipt Date: 20121004
  Transmission Date: 20130627
  Serious: Yes (Other)
  Sender: FDA-Public Use
  Company Number: FR-GE HEALTHCARE MEDICAL DIAGNOSTICS-OMPQ-NO-1209S-0986

PATIENT
  Age: 53 None
  Sex: Female

DRUGS (6)
  1. OMNIPAQUE [Suspect]
     Indication: PRODUCT USED FOR UNKNOWN INDICATION
     Dosage: dose not reported
     Route: 042
     Dates: start: 201202, end: 201202
  2. OMNIPAQUE [Suspect]
     Dosage: dose not reported
     Route: 065
     Dates: start: 20120509, end: 20120509
  3. METHOTREXATE [Concomitant]
  4. NEURONTIN [Concomitant]
  5. ENBREL [Concomitant]
  6. EFFEXOR [Concomitant]

REACTIONS (4)
  - Pruritus [Recovered/Resolved]
  - Urticaria [Recovered/Resolved]
  - Angioedema [Recovered/Resolved]
  - Urticaria [Unknown]
